FAERS Safety Report 23525773 (Version 1)
Quarter: 2024Q1

REPORT INFORMATION
  Report Type: Spontaneous
  Country: US (occurrence: US)
  Receive Date: 20240215
  Receipt Date: 20240215
  Transmission Date: 20240410
  Serious: No
  Sender: FDA-Public Use
  Company Number: US-ABBVIE-5638741

PATIENT
  Sex: Female

DRUGS (4)
  1. BOTOX [Suspect]
     Active Substance: ONABOTULINUMTOXINA
     Indication: Migraine
     Dosage: TIME INTERVAL: AS NECESSARY
     Route: 058
     Dates: start: 20220809, end: 20220809
  2. PERIACTIN [Suspect]
     Active Substance: CYPROHEPTADINE HYDROCHLORIDE
     Indication: Migraine
     Dosage: FORM STRENGTH: 4 MILLIGRAM
     Route: 048
     Dates: start: 202210
  3. REGLAN [Suspect]
     Active Substance: METOCLOPRAMIDE HYDROCHLORIDE
     Indication: Migraine
     Dosage: FORM STRENGTH: 10 MILLIGRAM
     Route: 048
     Dates: start: 202210
  4. TYLENOL [Suspect]
     Active Substance: ACETAMINOPHEN
     Indication: Migraine
     Dosage: 500-1000 MG
     Route: 048
     Dates: start: 202210

REACTIONS (7)
  - Maternal exposure during pregnancy [Unknown]
  - COVID-19 [Unknown]
  - Nausea [Unknown]
  - Diabetes mellitus [Unknown]
  - Symptom recurrence [Recovering/Resolving]
  - Vomiting [Unknown]
  - Live birth [Unknown]

NARRATIVE: CASE EVENT DATE: 20230307
